FAERS Safety Report 4528982-8 (Version None)
Quarter: 2004Q4

REPORT INFORMATION
  Report Type: 
  Country: None (occurrence: None)
  Receive Date: 20041215
  Receipt Date: 20041215
  Transmission Date: 20050328
  Serious: Yes (Death, Hospitalization)
  Sender: FDA-Public Use
  Company Number: None

PATIENT
  Age: 36 Year
  Sex: Female

DRUGS (1)
  1. RISPERDAL [Suspect]
     Indication: SELF INJURIOUS BEHAVIOUR
     Dosage: 0.25 - 0.5 MG, BID, PO
     Route: 048

REACTIONS (9)
  - ANAEMIA [None]
  - BRADYCARDIA [None]
  - CONJUNCTIVITIS [None]
  - HYPOGLYCAEMIA [None]
  - HYPOTENSION [None]
  - OXYGEN SATURATION DECREASED [None]
  - PAIN [None]
  - PANCYTOPENIA [None]
  - RESPIRATORY TRACT INFECTION [None]
